FAERS Safety Report 4400711-8 (Version None)
Quarter: 2004Q3

REPORT INFORMATION
  Report Type: 
  Country: None (occurrence: None)
  Receive Date: 20040716
  Receipt Date: 20040716
  Transmission Date: 20050211
  Serious: Yes (Disabling)
  Sender: FDA-Public Use
  Company Number: None

PATIENT
  Age: 48 Year
  Sex: Female
  Weight: 77.1115 kg

DRUGS (1)
  1. ZICAM NASAL SPRAY (ZINCUM GLUCONICUM 2X) [Suspect]
     Indication: NASOPHARYNGITIS
     Dosage: 1 DOSE -NASAL SPRAY
     Route: 045
     Dates: start: 20040612

REACTIONS (3)
  - ANOSMIA [None]
  - DYSGEUSIA [None]
  - PAROSMIA [None]
